FAERS Safety Report 5527492-9 (Version None)
Quarter: 2007Q4

REPORT INFORMATION
  Report Type: 
  Country: None (occurrence: None)
  Receive Date: 20071121
  Receipt Date: 20071108
  Transmission Date: 20080405
  Serious: Yes (Hospitalization)
  Sender: FDA-Public Use
  Company Number: MEDI-0006161

PATIENT
  Age: 51 Year
  Sex: Female
  Weight: 45.269 kg

DRUGS (2)
  1. ETHYOL [Suspect]
     Indication: RADIOTHERAPY
     Dosage: 500 MG, 1 IN 1 D, SUBCUTANEOUS
     Route: 058
     Dates: start: 20070925, end: 20071009
  2. RADIATION THERAPY [Concomitant]

REACTIONS (5)
  - HYPOTENSION [None]
  - NAUSEA [None]
  - RASH [None]
  - RESPIRATORY TRACT INFECTION [None]
  - VOMITING [None]
